FAERS Safety Report 10252877 (Version 3)
Quarter: 2014Q3

REPORT INFORMATION
  Report Type: Spontaneous
  Country: US (occurrence: US)
  Receive Date: 20140623
  Receipt Date: 20140825
  Transmission Date: 20150326
  Serious: Yes (Other)
  Sender: FDA-Public Use
  Company Number: US-BAYER-2014-091251

PATIENT
  Age: 26 Year
  Sex: Female
  Weight: 202 kg

DRUGS (2)
  1. MIRENA [Suspect]
     Active Substance: LEVONORGESTREL
     Indication: MIGRAINE
  2. MIRENA [Suspect]
     Active Substance: LEVONORGESTREL
     Indication: CONTRACEPTION
     Dosage: 20 MCG/24HR, CONT
     Route: 015
     Dates: start: 20140606, end: 20140614

REACTIONS (7)
  - Device deployment issue [None]
  - Procedural pain [None]
  - Abdominal pain lower [None]
  - Abdominal distension [None]
  - Device expulsion [Recovered/Resolved]
  - Intentional medical device removal by patient [None]
  - Post procedural haemorrhage [Recovered/Resolved]

NARRATIVE: CASE EVENT DATE: 201406
